FAERS Safety Report 24661536 (Version 1)
Quarter: 2024Q4

REPORT INFORMATION
  Report Type: Spontaneous
  Country: US (occurrence: US)
  Receive Date: 20241125
  Receipt Date: 20241125
  Transmission Date: 20250115
  Serious: Yes (Other)
  Sender: CROWN LABORATORIES, INC.
  Company Number: US-Crown Laboratories, Inc.-2165925

PATIENT
  Age: 52 Year
  Sex: Male
  Weight: 105 kg

DRUGS (1)
  1. ALACORT [Suspect]
     Active Substance: HYDROCORTISONE
     Indication: Haemorrhoids
     Dates: start: 20241119, end: 20241120

REACTIONS (5)
  - Nausea [Not Recovered/Not Resolved]
  - Abnormal faeces [Unknown]
  - Faeces discoloured [Unknown]
  - Malaise [Not Recovered/Not Resolved]
  - Abdominal discomfort [Not Recovered/Not Resolved]

NARRATIVE: CASE EVENT DATE: 20241120
